FAERS Safety Report 17884640 (Version 1)
Quarter: 2020Q2

REPORT INFORMATION
  Report Type: Spontaneous
  Country: US (occurrence: US)
  Receive Date: 20200610
  Receipt Date: 20200610
  Transmission Date: 20200714
  Serious: No
  Sender: FDA-Public Use
  Company Number: None

PATIENT
  Age: 64 Year
  Sex: Female

DRUGS (1)
  1. TALTZ [Suspect]
     Active Substance: IXEKIZUMAB
     Indication: PSORIASIS
     Dosage: ?          OTHER FREQUENCY:EVERY4WEEKS ;?
     Route: 058
     Dates: start: 20190517, end: 20200601

REACTIONS (4)
  - Peripheral swelling [None]
  - Dyspnoea [None]
  - Skin burning sensation [None]
  - Therapy cessation [None]

NARRATIVE: CASE EVENT DATE: 20200510
